FAERS Safety Report 24141799 (Version 1)
Quarter: 2024Q3

REPORT INFORMATION
  Report Type: Other
  Country: TR (occurrence: TR)
  Receive Date: 20240726
  Receipt Date: 20240726
  Transmission Date: 20241017
  Serious: Yes (Congenital Anomaly, Other)
  Sender: APRECIA PHARMACEUTICALS
  Company Number: TR-Aprecia Pharmaceuticals-APRE20241044

PATIENT

DRUGS (2)
  1. LEVETIRACETAM [Suspect]
     Active Substance: LEVETIRACETAM
     Indication: Foetal exposure timing unspecified
     Dosage: UNKNOWN
     Route: 015
  2. VALPROIC ACID [Suspect]
     Active Substance: VALPROIC ACID
     Indication: Foetal exposure timing unspecified
     Dosage: UNKNOWN
     Route: 015

REACTIONS (2)
  - Foetal malformation [Unknown]
  - Foetal exposure timing unspecified [None]
